FAERS Safety Report 9996055 (Version 1)
Quarter: 2014Q1

REPORT INFORMATION
  Report Type: Spontaneous
  Country: BE (occurrence: BE)
  Receive Date: 20140311
  Receipt Date: 20140311
  Transmission Date: 20141002
  Serious: Yes (Other)
  Sender: FDA-Public Use
  Company Number: BE-ACTAVIS-2014-03938

PATIENT
  Age: 58 Year
  Sex: Male
  Weight: 100 kg

DRUGS (4)
  1. METHYLPREDNISOLONE (UNKNOWN) [Suspect]
     Indication: LIVER TRANSPLANT
     Dosage: 20 MG, BID
     Route: 065
  2. MYCOPHENOLATE MOFETIL (UNKNOWN) [Suspect]
     Indication: LIVER TRANSPLANT
     Dosage: 1 G, BID
     Route: 065
  3. TACROLIMUS (UNKNOWN) [Suspect]
     Indication: LIVER TRANSPLANT
     Dosage: UP TO 3 MG BID
     Route: 048
  4. BASILIXIMAB [Suspect]
     Indication: LIVER TRANSPLANT
     Dosage: 20 MG, UNKNOWN, AT TRANSPLANT TIME AND DURING THE FOURTH DAY
     Route: 065

REACTIONS (1)
  - Bronchopulmonary aspergillosis [Unknown]
